FAERS Safety Report 9184984 (Version 2)
Quarter: 2013Q2

REPORT INFORMATION
  Report Type: Spontaneous
  Country: US (occurrence: US)
  Receive Date: 20130325
  Receipt Date: 20130416
  Transmission Date: 20140414
  Serious: No
  Sender: FDA-Public Use
  Company Number: US-009507513-1303USA008439

PATIENT
  Sex: Male

DRUGS (1)
  1. PEGINTRON [Suspect]
     Dosage: 30 MICROGRAM, QW
     Route: 058
     Dates: start: 201212

REACTIONS (1)
  - Malaise [Unknown]
